FAERS Safety Report 20520579 (Version 1)
Quarter: 2022Q1

REPORT INFORMATION
  Report Type: Spontaneous
  Country: None (occurrence: US)
  Receive Date: 20220225
  Receipt Date: 20220225
  Transmission Date: 20220424
  Serious: Yes (Other)
  Sender: FDA-Public Use
  Company Number: US-The Mentholatum Company-2126233

PATIENT
  Age: 49 Year
  Sex: Male

DRUGS (1)
  1. DG HEALTH MAXIMUM STRENGTH PAIN RELIEVING CLEANSING [Suspect]
     Active Substance: BENZALKONIUM CHLORIDE\LIDOCAINE HYDROCHLORIDE
     Indication: Analgesic therapy
     Route: 061
     Dates: start: 20220217, end: 20220217

REACTIONS (3)
  - Thermal burn [Recovering/Resolving]
  - Skin weeping [Recovering/Resolving]
  - Application site erythema [Recovering/Resolving]

NARRATIVE: CASE EVENT DATE: 20220217
